FAERS Safety Report 5407414-1 (Version None)
Quarter: 2007Q3

REPORT INFORMATION
  Report Type: 
  Country: None (occurrence: None)
  Receive Date: 20070807
  Receipt Date: 20070803
  Transmission Date: 20080115
  Serious: Yes (Other)
  Sender: FDA-Public Use
  Company Number: DE-BRISTOL-MYERS SQUIBB COMPANY-13867080

PATIENT
  Sex: Male

DRUGS (3)
  1. REYATAZ [Suspect]
     Indication: HIV INFECTION
  2. ACETAMINOPHEN [Suspect]
     Indication: INFLUENZA
  3. TRUVADA [Suspect]
     Indication: HIV INFECTION

REACTIONS (1)
  - INTRAVASCULAR HAEMOLYSIS [None]
